FAERS Safety Report 22914447 (Version 7)
Quarter: 2025Q3

REPORT INFORMATION
  Report Type: Spontaneous
  Country: EU (occurrence: EU)
  Receive Date: 20230907
  Receipt Date: 20250926
  Transmission Date: 20251021
  Serious: Yes (Other)
  Sender: CELLTRION
  Company Number: EU-CELLTRION INC.-2023CZ016608

PATIENT

DRUGS (35)
  1. TRASTUZUMAB [Suspect]
     Active Substance: TRASTUZUMAB
     Indication: Invasive ductal breast carcinoma
     Route: 065
  2. TRASTUZUMAB [Suspect]
     Active Substance: TRASTUZUMAB
     Indication: Breast cancer
     Route: 065
     Dates: start: 2019
  3. TRASTUZUMAB [Suspect]
     Active Substance: TRASTUZUMAB
     Indication: Breast cancer
     Route: 065
     Dates: start: 2012
  4. TRASTUZUMAB [Suspect]
     Active Substance: TRASTUZUMAB
     Dates: start: 2019
  5. TRASTUZUMAB [Suspect]
     Active Substance: TRASTUZUMAB
     Route: 058
  6. TRASTUZUMAB [Suspect]
     Active Substance: TRASTUZUMAB
     Route: 065
     Dates: start: 2012
  7. TRASTUZUMAB [Suspect]
     Active Substance: TRASTUZUMAB
     Route: 058
     Dates: start: 2012
  8. CAPECITABINE [Suspect]
     Active Substance: CAPECITABINE
     Indication: Disease progression
     Route: 065
  9. CAPECITABINE [Suspect]
     Active Substance: CAPECITABINE
     Indication: Breast cancer
     Route: 048
  10. CAPECITABINE [Suspect]
     Active Substance: CAPECITABINE
     Route: 048
  11. DOXORUBICIN HYDROCHLORIDE [Suspect]
     Active Substance: DOXORUBICIN HYDROCHLORIDE
     Indication: Breast cancer
     Route: 065
     Dates: start: 2012
  12. GOSERELIN [Suspect]
     Active Substance: GOSERELIN
     Indication: Breast cancer
     Route: 065
     Dates: start: 2012
  13. TAMOXIFEN [Suspect]
     Active Substance: TAMOXIFEN
     Indication: Breast cancer
     Route: 065
  14. TAMOXIFEN [Suspect]
     Active Substance: TAMOXIFEN
     Route: 065
  15. LETROZOLE [Suspect]
     Active Substance: LETROZOLE
     Indication: Breast cancer
     Route: 065
     Dates: start: 2012
  16. CYCLOPHOSPHAMIDE [Suspect]
     Active Substance: CYCLOPHOSPHAMIDE
     Indication: Breast cancer
     Route: 065
     Dates: start: 2012
  17. PACLITAXEL [Suspect]
     Active Substance: PACLITAXEL
     Indication: Breast cancer
     Route: 065
     Dates: start: 2012
  18. PERTUZUMAB [Suspect]
     Active Substance: PERTUZUMAB
     Indication: Invasive ductal breast carcinoma
     Route: 065
     Dates: start: 2019
  19. PERTUZUMAB [Suspect]
     Active Substance: PERTUZUMAB
     Indication: Breast cancer
  20. PERTUZUMAB [Suspect]
     Active Substance: PERTUZUMAB
     Indication: Invasive ductal breast carcinoma
     Route: 065
  21. PERTUZUMAB [Suspect]
     Active Substance: PERTUZUMAB
     Indication: Breast cancer
     Route: 065
     Dates: start: 2019
  22. DOCETAXEL [Suspect]
     Active Substance: DOCETAXEL
     Indication: Invasive ductal breast carcinoma
     Route: 065
     Dates: start: 2019
  23. DOCETAXEL [Suspect]
     Active Substance: DOCETAXEL
     Indication: Breast cancer
  24. DOCETAXEL [Suspect]
     Active Substance: DOCETAXEL
     Indication: Invasive ductal breast carcinoma
     Route: 065
     Dates: start: 2019
  25. DOCETAXEL [Suspect]
     Active Substance: DOCETAXEL
     Indication: Breast cancer
  26. LAPATINIB [Suspect]
     Active Substance: LAPATINIB
     Indication: Disease progression
     Route: 065
  27. LAPATINIB [Suspect]
     Active Substance: LAPATINIB
     Indication: Breast cancer
  28. FAM-TRASTUZUMAB DERUXTECAN-NXKI [Concomitant]
     Active Substance: FAM-TRASTUZUMAB DERUXTECAN-NXKI
     Indication: Breast cancer
     Route: 065
     Dates: start: 2021
  29. FAM-TRASTUZUMAB DERUXTECAN-NXKI [Concomitant]
     Active Substance: FAM-TRASTUZUMAB DERUXTECAN-NXKI
     Route: 065
     Dates: start: 202111
  30. TAMOXIFEN CITRATE [Concomitant]
     Active Substance: TAMOXIFEN CITRATE
     Indication: Product used for unknown indication
     Route: 065
  31. CAPECITABINE [Concomitant]
     Active Substance: CAPECITABINE
     Route: 048
  32. LAPATINIB [Concomitant]
     Active Substance: LAPATINIB
     Indication: Product used for unknown indication
     Route: 065
  33. GOSERELIN [Concomitant]
     Active Substance: GOSERELIN
  34. LETROZOLE [Concomitant]
     Active Substance: LETROZOLE
     Indication: Product used for unknown indication
     Route: 065
  35. XELODA [Concomitant]
     Active Substance: CAPECITABINE
     Indication: Product used for unknown indication
     Route: 065

REACTIONS (9)
  - Breast cancer [Recovered/Resolved]
  - Disease progression [Unknown]
  - Biliary colic [Unknown]
  - Pain [Unknown]
  - Dyspnoea [Unknown]
  - Therapeutic product effect incomplete [Unknown]
  - Drug ineffective [Recovered/Resolved]
  - Treatment failure [Recovered/Resolved]
  - Off label use [Unknown]
